FAERS Safety Report 7539442-4 (Version None)
Quarter: 2011Q2

REPORT INFORMATION
  Report Type: 
  Country: None (occurrence: None)
  Receive Date: 20110610
  Receipt Date: 20110607
  Transmission Date: 20111010
  Serious: No
  Sender: FDA-Public Use
  Company Number: US-PFIZER INC-2002003406

PATIENT
  Sex: Male
  Weight: 109 kg

DRUGS (3)
  1. ACETAMINOPHEN [Concomitant]
  2. VIAGRA [Suspect]
     Dosage: 300 MG, UNK
     Route: 048
     Dates: start: 20110607
  3. VIAGRA [Suspect]
     Indication: ERECTILE DYSFUNCTION
     Dosage: UNK
     Route: 048
     Dates: start: 20020501

REACTIONS (5)
  - PAINFUL ERECTION [None]
  - ERECTION INCREASED [None]
  - PENIS DISORDER [None]
  - INCORRECT DOSE ADMINISTERED [None]
  - GENITAL SWELLING [None]
